FAERS Safety Report 6819266-3 (Version None)
Quarter: 2010Q3

REPORT INFORMATION
  Report Type: 
  Country: None (occurrence: None)
  Receive Date: 20100707
  Receipt Date: 20100623
  Transmission Date: 20110219
  Serious: Yes (Hospitalization, Other)
  Sender: FDA-Public Use
  Company Number: US-ELI_LILLY_AND_COMPANY-US201001000207

PATIENT
  Sex: Female

DRUGS (6)
  1. FORTEO [Suspect]
     Indication: OSTEOPOROSIS
     Dosage: 20 UG, DAILY (1/D)
     Dates: start: 20090601
  2. THYROID TAB [Concomitant]
  3. PREVACID [Concomitant]
  4. SPIRONOLACTONE [Concomitant]
  5. PROVIGIL [Concomitant]
  6. XALATAN [Concomitant]
     Indication: EYE DISORDER

REACTIONS (2)
  - LIP AND/OR ORAL CAVITY CANCER [None]
  - LIP AND/OR ORAL CAVITY CANCER RECURRENT [None]
